FAERS Safety Report 21766135 (Version 1)
Quarter: 2022Q4

REPORT INFORMATION
  Report Type: Spontaneous
  Country: ES (occurrence: ES)
  Receive Date: 20221222
  Receipt Date: 20221222
  Transmission Date: 20230113
  Serious: Yes (Other)
  Sender: FDA-Public Use
  Company Number: 22_00021307(0)

PATIENT
  Age: 3 Month
  Sex: Male

DRUGS (4)
  1. DEXMEDETOMIDINE HYDROCHLORIDE [Suspect]
     Active Substance: DEXMEDETOMIDINE HYDROCHLORIDE
     Indication: Sedative therapy
     Dosage: 1.4 MICROGRAM/KILOGRAM, QH
     Route: 065
     Dates: start: 20221003
  2. FENTANYL [Concomitant]
     Active Substance: FENTANYL
     Indication: Sedation
     Dosage: 3 MICROGRAM/KILOGRAM, QH
     Route: 065
  3. MIDAZOLAM [Concomitant]
     Active Substance: MIDAZOLAM
     Indication: Sedation
     Dosage: 3 MICROGRAM/KILOGRAM, QH
     Route: 065
  4. CHLORAL HYDRATE [Concomitant]
     Active Substance: CHLORAL HYDRATE
     Indication: Sedation
     Dosage: 25 MILLIGRAM/KILOGRAM
     Route: 065

REACTIONS (5)
  - Accidental overdose [Recovered/Resolved]
  - Product preparation error [Recovered/Resolved]
  - Sedation complication [Recovered/Resolved]
  - Product administered to patient of inappropriate age [Unknown]
  - Product prescribing error [Unknown]

NARRATIVE: CASE EVENT DATE: 20221003
